FAERS Safety Report 8497627-7 (Version None)
Quarter: 2012Q3

REPORT INFORMATION
  Report Type: 
  Country: None (occurrence: None)
  Receive Date: 20120709
  Receipt Date: 20120612
  Transmission Date: 20120928
  Serious: No
  Sender: FDA-Public Use
  Company Number: US-AMGEN-USASP2012026199

PATIENT
  Age: 63 Year
  Sex: Female
  Weight: 120 kg

DRUGS (3)
  1. ENBREL [Suspect]
     Indication: PSORIATIC ARTHROPATHY
     Dosage: 50 MG, QWK
     Route: 058
     Dates: start: 20080828
  2. ENBREL [Suspect]
     Indication: PSORIASIS
  3. ARAVA [Concomitant]
     Dosage: 20 MG, QD
     Route: 048
     Dates: start: 20080401

REACTIONS (9)
  - HYPERTENSION [None]
  - PSORIASIS [None]
  - OROPHARYNGEAL PAIN [None]
  - BRONCHITIS [None]
  - PSORIATIC ARTHROPATHY [None]
  - HEADACHE [None]
  - MEDICATION ERROR [None]
  - SINUSITIS [None]
  - WEIGHT DECREASED [None]
